FAERS Safety Report 11167013 (Version 2)
Quarter: 2020Q4

REPORT INFORMATION
  Report Type: Spontaneous
  Country: IT (occurrence: IT)
  Receive Date: 20150605
  Receipt Date: 20201015
  Transmission Date: 20210113
  Serious: Yes (Other)
  Sender: FDA-Public Use
  Company Number: IT-TEVA-567362ACC

PATIENT
  Age: 45 Year
  Sex: Female
  Weight: 52 kg

DRUGS (4)
  1. CALCIO LEVOFOLINATO TEVA - 100 MG POLVERE PER SOLUZIONE PER INFUSIONE [Suspect]
     Active Substance: LEVOLEUCOVORIN CALCIUM
     Indication: COLON CANCER
     Dosage: 20 MG/M2 CYCLICAL
     Route: 042
     Dates: start: 20150511, end: 20150513
  2. LIMICAN - 50 MG/2ML SOLUZIONE INIETTABILE [Suspect]
     Active Substance: ALIZAPRIDE HYDROCHLORIDE
     Indication: PRODUCT USED FOR UNKNOWN INDICATION
     Dosage: 1 DF CYCLICAL
     Dates: start: 20150511, end: 20150513
  3. FLUOROURACILE AHCL - 50MG/ML SOLUZIONE INIETTABILE O INFUSIONE [Suspect]
     Active Substance: FLUOROURACIL
     Indication: COLON CANCER
     Dosage: 425 MG/M2 CYCLICAL, SOLUTION FOR INJECTION/INFUSION
     Route: 042
     Dates: start: 20150511, end: 20150513
  4. ANTRA - 10 MG CAPSULE RIGIDE GASTRORESISTENTI [Concomitant]
     Indication: PRODUCT USED FOR UNKNOWN INDICATION
     Dosage: 1 DF, GASTRO-RESISTANT CAPSULE, HARD
     Route: 048

REACTIONS (5)
  - Headache [Recovering/Resolving]
  - Nausea [Recovering/Resolving]
  - Oropharyngeal pain [Recovering/Resolving]
  - Extrasystoles [Recovering/Resolving]
  - Chest pain [Recovering/Resolving]

NARRATIVE: CASE EVENT DATE: 20150511
